FAERS Safety Report 9871890 (Version 2)
Quarter: 2014Q1

REPORT INFORMATION
  Report Type: Spontaneous
  Country: US (occurrence: US)
  Receive Date: 20140205
  Receipt Date: 20140205
  Transmission Date: 20141002
  Serious: Yes (Hospitalization)
  Sender: FDA-Public Use
  Company Number: US-B.I. PHARMACEUTICALS,INC./RIDGEFIELD-2013-BI-43424BP

PATIENT
  Age: 82 Year
  Sex: Female
  Weight: 50 kg

DRUGS (15)
  1. PRADAXA [Suspect]
     Indication: ATRIAL FIBRILLATION
     Dosage: 300 MG
     Route: 048
     Dates: start: 20110304, end: 20111222
  2. ASA [Suspect]
     Indication: PRODUCT USED FOR UNKNOWN INDICATION
  3. ZETIA [Concomitant]
     Dosage: 10 MG
     Route: 048
     Dates: start: 2006, end: 2011
  4. ARICEPT [Concomitant]
     Dosage: 10 MG
     Route: 048
  5. FERROUS SULFATE [Concomitant]
     Dosage: 650 MG
  6. GLIPIZIDE [Concomitant]
     Dosage: 5 MG
     Route: 048
  7. METFORMIN [Concomitant]
     Dosage: 2000 MG
     Route: 048
  8. ZOCOR [Concomitant]
     Dosage: 40 MG
     Route: 048
  9. CARDIZEM CD [Concomitant]
     Dosage: 180 MG
     Route: 048
  10. LEVOTHYROXINE [Concomitant]
     Dosage: 25 MCG
     Route: 048
  11. LISINOPRIL [Concomitant]
     Dosage: 5 MG
     Route: 048
  12. PROTONIX [Concomitant]
     Dosage: 40 MG
     Route: 048
  13. ANTIVERT [Concomitant]
     Dosage: 75 MG
     Route: 048
  14. DETROL LA [Concomitant]
     Dosage: 4 MG
     Route: 048
  15. RISPERDAL [Concomitant]
     Dosage: 1 MG
     Route: 048

REACTIONS (1)
  - Gastrointestinal haemorrhage [Unknown]
